FAERS Safety Report 7464351-9 (Version None)
Quarter: 2011Q2

REPORT INFORMATION
  Report Type: 
  Country: None (occurrence: None)
  Receive Date: 20110509
  Receipt Date: 20110429
  Transmission Date: 20111010
  Serious: Yes (Hospitalization)
  Sender: FDA-Public Use
  Company Number: US-BAYER-200826127NA

PATIENT
  Sex: Male

DRUGS (3)
  1. NEXAVAR [Suspect]
     Dosage: DAILY DOSE 200 MG
     Route: 048
     Dates: start: 20110101
  2. NEXAVAR [Suspect]
     Indication: HEPATIC NEOPLASM MALIGNANT
     Route: 048
     Dates: start: 20080523, end: 20080606
  3. NEXAVAR [Suspect]
     Dosage: DAILY DOSE 400 MG
     Route: 048
     Dates: start: 20110104, end: 20110101

REACTIONS (15)
  - EAR PRURITUS [None]
  - INSOMNIA [None]
  - TUMOUR EXCISION [None]
  - BONE NEOPLASM [None]
  - ARTHRALGIA [None]
  - PRURITUS [None]
  - DIARRHOEA [None]
  - DRY MOUTH [None]
  - HYPOACUSIS [None]
  - HERNIA [None]
  - BLISTER [None]
  - ERYTHEMA [None]
  - MUSCULOSKELETAL PAIN [None]
  - ASTHENIA [None]
  - RASH GENERALISED [None]
